FAERS Safety Report 9819938 (Version 1)
Quarter: 2014Q1

REPORT INFORMATION
  Report Type: Spontaneous
  Country: US (occurrence: None)
  Receive Date: 20140113
  Receipt Date: 20140113
  Transmission Date: 20141002
  Serious: Yes (Other)
  Sender: FDA-Public Use
  Company Number: None

PATIENT
  Age: 48 Year
  Sex: Female
  Weight: 74.84 kg

DRUGS (1)
  1. HUMIRA [Suspect]
     Indication: PSORIASIS

REACTIONS (10)
  - Alopecia [None]
  - Fatigue [None]
  - Weight increased [None]
  - Photosensitivity reaction [None]
  - Musculoskeletal stiffness [None]
  - Neck pain [None]
  - Skin discolouration [None]
  - Muscular weakness [None]
  - Depression [None]
  - White blood cell count increased [None]
